FAERS Safety Report 15211624 (Version 1)
Quarter: 2018Q3

REPORT INFORMATION
  Report Type: Spontaneous
  Country: US (occurrence: US)
  Receive Date: 20180702
  Receipt Date: 20180702
  Transmission Date: 20181010
  Serious: Yes (Hospitalization)
  Sender: FDA-Public Use
  Company Number: None

PATIENT
  Age: 66 Year
  Sex: Female
  Weight: 58 kg

DRUGS (6)
  1. CEFAZOLIN [Concomitant]
     Active Substance: CEFAZOLIN
     Dates: start: 20170908, end: 20170908
  2. VANCOMYCIN [Suspect]
     Active Substance: VANCOMYCIN
     Indication: CELLULITIS
     Route: 042
     Dates: start: 20170907, end: 20170911
  3. CLINDAMYCIN. [Concomitant]
     Active Substance: CLINDAMYCIN
     Dates: start: 20170907, end: 20170908
  4. ENTECAVIR. [Concomitant]
     Active Substance: ENTECAVIR
     Dates: start: 20170912, end: 20170913
  5. AZTREONAM. [Concomitant]
     Active Substance: AZTREONAM
     Dates: start: 20170909, end: 20170910
  6. LINEZOLID. [Concomitant]
     Active Substance: LINEZOLID
     Dates: start: 20170909, end: 20170913

REACTIONS (3)
  - Drug hypersensitivity [None]
  - Generalised erythema [None]
  - Shock [None]
